FAERS Safety Report 7167312-2 (Version None)
Quarter: 2010Q4

REPORT INFORMATION
  Report Type: 
  Country: None (occurrence: None)
  Receive Date: 20101216
  Receipt Date: 20101203
  Transmission Date: 20110411
  Serious: Yes (Life-Threatening, Hospitalization, Other)
  Sender: FDA-Public Use
  Company Number: GB-ELI_LILLY_AND_COMPANY-GB201005004130

PATIENT
  Sex: Male

DRUGS (3)
  1. ZYPREXA [Suspect]
     Indication: AFFECTIVE DISORDER
     Dates: start: 20030101, end: 20050101
  2. ZYPREXA [Suspect]
     Dosage: 5 MG, UNK
     Dates: start: 20050101, end: 20100101
  3. ZYPREXA [Suspect]
     Dosage: 10 MG, UNK
     Dates: start: 20100101

REACTIONS (7)
  - ABDOMINAL PAIN UPPER [None]
  - DEEP VEIN THROMBOSIS [None]
  - EATING DISORDER [None]
  - GINGIVAL BLEEDING [None]
  - HAEMATEMESIS [None]
  - OFF LABEL USE [None]
  - PANCREATIC DISORDER [None]
